FAERS Safety Report 8745960 (Version 2)
Quarter: 2012Q4

REPORT INFORMATION
  Report Type: 
  Country: US (occurrence: US)
  Receive Date: 20120827
  Receipt Date: 20120911
  Transmission Date: 20130627
  Serious: No
  Sender: FDA-Public Use
  Company Number: US-B.I. PHARMACEUTICALS,INC./RIDGEFIELD-2012-BP-19041BP

PATIENT
  Age: 70 Year
  Sex: Male

DRUGS (15)
  1. AGGRENOX [Suspect]
     Indication: CEREBROVASCULAR ACCIDENT PROPHYLAXIS
     Route: 048
     Dates: start: 20120809
  2. FLOMAX CAPSULES [Suspect]
     Indication: URINARY TRACT DISORDER
     Dosage: 0.4 mg
     Route: 048
  3. ALLOPURINOL [Concomitant]
     Indication: GOUT
     Dosage: 300 mg
     Route: 048
  4. CLARITIN [Concomitant]
     Indication: MULTIPLE ALLERGIES
     Dosage: 10 mg
     Route: 048
  5. HYDROCODONE [Concomitant]
     Indication: PAIN
     Route: 048
  6. MELOXICAM [Concomitant]
     Indication: ARTHRITIS
     Dosage: 15 mg
     Route: 048
  7. MIRALEX [Concomitant]
     Indication: CONSTIPATION
     Route: 048
  8. SINGULAIR [Concomitant]
     Indication: MULTIPLE ALLERGIES
     Dosage: 10 mg
     Route: 048
  9. ASTELIN [Concomitant]
     Indication: NASAL CONGESTION
     Route: 045
  10. PRILOSEC [Concomitant]
     Indication: GASTROOESOPHAGEAL REFLUX DISEASE
     Dosage: 20 mg
     Route: 048
  11. SIMVASTATIN [Concomitant]
     Indication: BLOOD CHOLESTEROL INCREASED
     Dosage: 20 mg
     Route: 048
  12. VITAMIN C [Concomitant]
     Indication: SUPPLEMENTATION THERAPY
     Dosage: 500 mg
     Route: 048
  13. MENS MULTIVITAMIN [Concomitant]
     Indication: SUPPLEMENTATION THERAPY
     Route: 048
  14. TRAZADONE [Concomitant]
     Indication: SLEEP DISORDER
     Dosage: 25 mg
     Route: 048
  15. THICKET [Concomitant]
     Indication: DYSPHAGIA
     Route: 048

REACTIONS (3)
  - Headache [Recovered/Resolved]
  - Pain [Not Recovered/Not Resolved]
  - Communication disorder [Not Recovered/Not Resolved]
